FAERS Safety Report 14079347 (Version 2)
Quarter: 2017Q4

REPORT INFORMATION
  Report Type: Spontaneous
  Country: JP (occurrence: JP)
  Receive Date: 20171012
  Receipt Date: 20171030
  Transmission Date: 20180321
  Serious: Yes (Other)
  Sender: FDA-Public Use
  Company Number: PHJP2017JP030420

PATIENT
  Age: 44 Year
  Sex: Female
  Weight: 69.4 kg

DRUGS (2)
  1. NIFEDIPINE. [Concomitant]
     Active Substance: NIFEDIPINE
     Indication: HYPERTENSION
     Dosage: 20 MG, UNK
     Route: 065
  2. COSENTYX [Suspect]
     Active Substance: SECUKINUMAB
     Indication: PUSTULAR PSORIASIS
     Dosage: 300 MG, UNK
     Route: 058
     Dates: start: 20171003

REACTIONS (8)
  - Erysipelas [Recovering/Resolving]
  - Erythema [Unknown]
  - Pyrexia [Unknown]
  - Eyelid oedema [Unknown]
  - C-reactive protein increased [Recovered/Resolved]
  - Eyelid pain [Unknown]
  - White blood cell count increased [Recovered/Resolved]
  - Erythema of eyelid [Unknown]

NARRATIVE: CASE EVENT DATE: 20171003
